FAERS Safety Report 12369543 (Version 7)
Quarter: 2017Q2

REPORT INFORMATION
  Report Type: Spontaneous
  Country: US (occurrence: US)
  Receive Date: 20160516
  Receipt Date: 20170418
  Transmission Date: 20170830
  Serious: Yes (Hospitalization, Other)
  Sender: FDA-Public Use
  Company Number: US-PFIZER INC-2016260732

PATIENT
  Age: 70 Year
  Sex: Female
  Weight: 91 kg

DRUGS (10)
  1. XELJANZ [Suspect]
     Active Substance: TOFACITINIB CITRATE
     Dosage: 5 MG, 2X/DAY
     Route: 048
     Dates: start: 20130523
  2. XELJANZ [Suspect]
     Active Substance: TOFACITINIB CITRATE
     Dosage: 10 MG, 2X/DAY
     Route: 048
     Dates: start: 201205, end: 20160329
  3. ROBAXIN [Concomitant]
     Active Substance: METHOCARBAMOL
     Dosage: 500 MG, 3X/DAY
     Dates: start: 20160418
  4. XELJANZ [Suspect]
     Active Substance: TOFACITINIB CITRATE
     Indication: RHEUMATOID ARTHRITIS
     Dosage: 5 MG, UNK
     Route: 048
  5. CELEXA [Concomitant]
     Active Substance: CITALOPRAM HYDROBROMIDE
     Dosage: 30 MG, 1X/DAY
     Route: 048
  6. SYNTHROID [Concomitant]
     Active Substance: LEVOTHYROXINE SODIUM
     Indication: HYPOTHYROIDISM
     Dosage: 175 UG, 1X/DAY
     Route: 048
     Dates: start: 1996
  7. CELEXA [Concomitant]
     Active Substance: CITALOPRAM HYDROBROMIDE
     Indication: DEPRESSION
     Dosage: 40 MG, UNK
     Route: 048
  8. FOSAMAX [Concomitant]
     Active Substance: ALENDRONATE SODIUM
     Indication: BONE DISORDER
     Dosage: 70 MG, WEEKLY
     Route: 048
  9. XELJANZ [Suspect]
     Active Substance: TOFACITINIB CITRATE
     Dosage: 5 MG, 2X/DAY
     Route: 048
     Dates: start: 20130524, end: 20161129
  10. BACLOFEN. [Concomitant]
     Active Substance: BACLOFEN
     Dosage: 10 MG, 2X/DAY

REACTIONS (7)
  - Pneumonia [Not Recovered/Not Resolved]
  - Arthritis [Recovering/Resolving]
  - Hepatic enzyme increased [Not Recovered/Not Resolved]
  - Urinary tract infection [Not Recovered/Not Resolved]
  - Ankle fracture [Unknown]
  - Pain [Recovering/Resolving]
  - Spinal decompression [Not Recovered/Not Resolved]

NARRATIVE: CASE EVENT DATE: 201604
